FAERS Safety Report 25006625 (Version 1)
Quarter: 2025Q1

REPORT INFORMATION
  Report Type: Spontaneous
  Country: FR (occurrence: FR)
  Receive Date: 20250225
  Receipt Date: 20250225
  Transmission Date: 20250409
  Serious: Yes (Other)
  Sender: BRISTOL-MYERS SQUIBB COMPANY
  Company Number: FR-BRISTOL-MYERS SQUIBB COMPANY-2025-027885

PATIENT
  Age: 82 Year
  Sex: Male

DRUGS (2)
  1. ELIQUIS [Suspect]
     Active Substance: APIXABAN
     Indication: Aortic aneurysm
     Dosage: MORNING AND EVENING
  2. ELIQUIS [Suspect]
     Active Substance: APIXABAN
     Indication: Intracranial aneurysm

REACTIONS (3)
  - Fall [Unknown]
  - Subdural haematoma [Unknown]
  - Off label use [Unknown]
